FAERS Safety Report 24736330 (Version 1)
Quarter: 2024Q4

REPORT INFORMATION
  Report Type: Report from Study
  Country: FR (occurrence: FR)
  Receive Date: 20241216
  Receipt Date: 20241216
  Transmission Date: 20250114
  Serious: Yes (Other)
  Sender: ROCHE
  Company Number: FR-ROCHE-10000157777

PATIENT
  Age: 54 Year
  Sex: Female

DRUGS (6)
  1. ADO-TRASTUZUMAB EMTANSINE [Suspect]
     Active Substance: ADO-TRASTUZUMAB EMTANSINE
     Indication: Breast cancer
     Route: 042
     Dates: start: 201803, end: 201811
  2. TRASTUZUMAB [Concomitant]
     Active Substance: TRASTUZUMAB
     Dosage: ALSO GIVEN IN 2014
     Dates: start: 2009
  3. BEVACIZUMAB [Concomitant]
     Active Substance: BEVACIZUMAB
     Dates: start: 2010
  4. PACLITAXEL [Concomitant]
     Active Substance: PACLITAXEL
     Dates: start: 2010
  5. LAPATINIB [Concomitant]
     Active Substance: LAPATINIB
     Dates: start: 2010
  6. VINORELBINE [Concomitant]
     Active Substance: VINORELBINE TARTRATE
     Dates: start: 2014

REACTIONS (1)
  - Pulmonary arterial hypertension [Recovering/Resolving]

NARRATIVE: CASE EVENT DATE: 20181001
